FAERS Safety Report 7598556-3 (Version None)
Quarter: 2011Q3

REPORT INFORMATION
  Report Type: 
  Country: None (occurrence: None)
  Receive Date: 20110708
  Receipt Date: 20110630
  Transmission Date: 20111222
  Serious: Yes (Hospitalization, Other)
  Sender: FDA-Public Use
  Company Number: TR-ELI_LILLY_AND_COMPANY-TR201105008515

PATIENT
  Age: 65 Year
  Sex: Female

DRUGS (3)
  1. ORLISTAT [Concomitant]
     Indication: OBESITY
  2. METFORMIN HCL [Concomitant]
  3. BYETTA [Suspect]
     Dosage: 5 UG, BID

REACTIONS (6)
  - WEIGHT DECREASED [None]
  - PULMONARY EMBOLISM [None]
  - NAUSEA [None]
  - VOMITING [None]
  - TACHYCARDIA [None]
  - VENOUS THROMBOSIS LIMB [None]
